FAERS Safety Report 17400524 (Version 2)
Quarter: 2020Q1

REPORT INFORMATION
  Report Type: Report from Study
  Country: BR (occurrence: BR)
  Receive Date: 20200211
  Receipt Date: 20200213
  Transmission Date: 20200409
  Serious: Yes (Other)
  Sender: FDA-Public Use
  Company Number: BR-ROCHE-2543805

PATIENT
  Age: 62 Year
  Sex: Female

DRUGS (9)
  1. XOLAIR [Suspect]
     Active Substance: OMALIZUMAB
     Indication: ASTHMA
     Dosage: 2 AMPOULES MONTHLY, LAST APPLICATION ON 10 SEP (YEAR NOT SPECIFIED)
     Route: 058
     Dates: start: 20080715
  2. FORASEQ [Suspect]
     Active Substance: BUDESONIDE\FORMOTEROL FUMARATE
     Indication: ASTHMA
     Dosage: 2 DF, (1 TABLET FOR EACH TREATMENT, DAILY)
     Route: 055
  3. MONTELUCAST [Suspect]
     Active Substance: MONTELUKAST SODIUM
     Indication: ASTHMA
     Route: 065
  4. ALENIA [BUDESONIDE;FORMOTEROL FUMARATE] [Concomitant]
     Active Substance: BUDESONIDE\FORMOTEROL FUMARATE
     Indication: ASTHMA
     Dosage: (2 TABLETS, DAILY)
     Route: 055
  5. FORMOTEROL [Suspect]
     Active Substance: FORMOTEROL
     Indication: ASTHMA
     Route: 065
  6. BUDESONIDE. [Concomitant]
     Active Substance: BUDESONIDE
     Dosage: 50 MG, (2 APPLICATION, DAILY)
     Route: 055
  7. AEROLIN [Concomitant]
     Active Substance: ALBUTEROL
     Indication: ASTHMA
     Route: 065
  8. LORATADINE. [Suspect]
     Active Substance: LORATADINE
     Indication: ASTHMA
     Route: 065
  9. BUDESONIDE. [Concomitant]
     Active Substance: BUDESONIDE
     Indication: ASTHMA
     Dosage: 400 MG, (2 TABLET, DAILY)
     Route: 055

REACTIONS (19)
  - Abdominal pain upper [Recovered/Resolved]
  - Gait disturbance [Unknown]
  - Sinusitis [Recovered/Resolved]
  - Cataract [Unknown]
  - Nasal septum deviation [Recovered/Resolved]
  - Somnolence [Unknown]
  - Asthma [Unknown]
  - Feeling of relaxation [Not Recovered/Not Resolved]
  - Secretion discharge [Recovering/Resolving]
  - Dyspnoea [Recovered/Resolved]
  - Bacterial infection [Not Recovered/Not Resolved]
  - Bronchiectasis [Recovered/Resolved]
  - Headache [Recovering/Resolving]
  - Dyspepsia [Not Recovered/Not Resolved]
  - Rhinitis [Recovering/Resolving]
  - Nasal polyps [Recovered/Resolved]
  - Fatigue [Recovered/Resolved]
  - Malaise [Unknown]
  - Weight increased [Not Recovered/Not Resolved]

NARRATIVE: CASE EVENT DATE: 20200120
